FAERS Safety Report 6318524-9 (Version None)
Quarter: 2009Q3

REPORT INFORMATION
  Report Type: 
  Country: None (occurrence: None)
  Receive Date: 20090821
  Receipt Date: 20090711
  Transmission Date: 20100115
  Serious: Yes (Hospitalization, Other)
  Sender: FDA-Public Use
  Company Number: IN-BAXTER-2009BH011523

PATIENT
  Age: 1 Day
  Sex: Male
  Weight: 1 kg

DRUGS (2)
  1. DEXTROSE 10% [Suspect]
     Indication: PREMATURE BABY
     Route: 042
     Dates: start: 20090704, end: 20090701
  2. PLASMA-LYTE 56 AND DEXTROSE 5% IN PLASTIC CONTAINER [Suspect]
     Indication: PREMATURE BABY
     Route: 042
     Dates: start: 20090704, end: 20090701

REACTIONS (3)
  - C-REACTIVE PROTEIN INCREASED [None]
  - SEPSIS [None]
  - THROMBOCYTOPENIA [None]
